FAERS Safety Report 16214787 (Version 1)
Quarter: 2019Q2

REPORT INFORMATION
  Report Type: Spontaneous
  Country: US (occurrence: US)
  Receive Date: 20190418
  Receipt Date: 20190418
  Transmission Date: 20190711
  Serious: No
  Sender: FDA-Public Use
  Company Number: None

PATIENT
  Age: 39 Year
  Sex: Female
  Weight: 99.7 kg

DRUGS (3)
  1. DIPHENHYDRAMINE 25 MG IVP [Concomitant]
     Dates: start: 20190418, end: 20190418
  2. HYDROCORTISONE 100 MG IVP [Concomitant]
     Dates: start: 20190418, end: 20190418
  3. OCREVUS [Suspect]
     Active Substance: OCRELIZUMAB
     Indication: MULTIPLE SCLEROSIS
     Dosage: ?          OTHER FREQUENCY:ONE TIME INFUSION;?
     Route: 041
     Dates: start: 20190418, end: 20190418

REACTIONS (3)
  - Throat irritation [None]
  - Ear pruritus [None]
  - Infusion related reaction [None]

NARRATIVE: CASE EVENT DATE: 20190418
